FAERS Safety Report 7814736-3 (Version None)
Quarter: 2011Q4

REPORT INFORMATION
  Report Type: 
  Country: None (occurrence: None)
  Receive Date: 20111014
  Receipt Date: 20111010
  Transmission Date: 20120403
  Serious: Yes (Hospitalization, Other)
  Sender: FDA-Public Use
  Company Number: AU-B.I. PHARMACEUTICALS,INC./RIDGEFIELD-2011-AU-00907AU

PATIENT
  Sex: Male
  Weight: 92 kg

DRUGS (16)
  1. PRADAXA [Suspect]
     Indication: ATRIAL FIBRILLATION
     Dosage: 220 MG
     Dates: start: 20110614, end: 20110808
  2. ACTONEL [Concomitant]
  3. CALTRATE + VITAMIN D [Concomitant]
  4. METOPROLOL TARTRATE [Concomitant]
  5. LIPITOR [Concomitant]
     Dosage: 20 MG
  6. MAXIDEX [Concomitant]
  7. METFORMIN HCL [Concomitant]
  8. NITROLINGUAL [Concomitant]
     Dosage: RT: 400 MCG/DOSE
  9. ENALAPRIL MALEATE [Concomitant]
     Dosage: 20 MG
  10. IMDUR [Concomitant]
     Dosage: 120 MG
  11. MOVIPREP [Concomitant]
  12. LASIX [Concomitant]
     Dosage: 40 MG
  13. MACU-VISION [Concomitant]
  14. DIAMICRON [Concomitant]
     Dosage: 60 MG
  15. GASTRO GEL [Concomitant]
  16. NITRAZEPAM [Concomitant]

REACTIONS (1)
  - ACUTE MYOCARDIAL INFARCTION [None]
